FAERS Safety Report 5603182-9 (Version None)
Quarter: 2008Q1

REPORT INFORMATION
  Report Type: 
  Country: None (occurrence: None)
  Receive Date: 20080123
  Receipt Date: 20080107
  Transmission Date: 20080703
  Serious: Yes (Other)
  Sender: FDA-Public Use
  Company Number: B0502181A

PATIENT
  Age: 40 Year
  Sex: Female

DRUGS (1)
  1. LAMOTRIGINE (FORMULATION UNKNOWN) (GENERIC) (LA OTRIGINE) [Suspect]
     Indication: CONVULSION

REACTIONS (1)
  - LYMPHOID TISSUE HYPERPLASIA [None]
